FAERS Safety Report 19450744 (Version 1)
Quarter: 2021Q2

REPORT INFORMATION
  Report Type: Spontaneous
  Country: CN (occurrence: CN)
  Receive Date: 20210622
  Receipt Date: 20210622
  Transmission Date: 20210717
  Serious: Yes (Other)
  Sender: FDA-Public Use
  Company Number: CN-JIANGSU HENGRUI MEDICINE CO., LTD.-2113001

PATIENT
  Age: 60 Year
  Sex: Male
  Weight: 65 kg

DRUGS (4)
  1. NIMOTUZUMAB [Suspect]
     Active Substance: NIMOTUZUMAB
     Dates: start: 20200402
  2. CAMRELIZUMAB FOR INJECTION [Suspect]
     Active Substance: CAMRELIZUMAB
     Route: 041
     Dates: start: 20200514
  3. DOCETAXEL INJECTION USP, 20 MG/1 ML, 80 MG/4 ML, AND 160 MG/8 ML (20 M [Suspect]
     Active Substance: DOCETAXEL
     Indication: OESOPHAGEAL SQUAMOUS CELL CARCINOMA
     Dates: start: 20200513
  4. TISLELIZUMAB/PLACEBO [Suspect]
     Active Substance: TISLELIZUMAB

REACTIONS (2)
  - Immune-mediated lung disease [Recovering/Resolving]
  - Product use in unapproved indication [Unknown]

NARRATIVE: CASE EVENT DATE: 20200525
